FAERS Safety Report 6192763-2 (Version None)
Quarter: 2009Q2

REPORT INFORMATION
  Report Type: 
  Country: None (occurrence: None)
  Receive Date: 20090518
  Receipt Date: 20081030
  Transmission Date: 20091009
  Serious: No
  Sender: FDA-Public Use
  Company Number: US-TYCO HEALTHCARE/MALLINCKRODT-T200801848

PATIENT

DRUGS (6)
  1. ACETAMINOPHEN AND HYDROCODONE BITARTRATE [Suspect]
     Indication: PAIN
     Dosage: 1 TABLET Q 6 HR
     Route: 048
     Dates: start: 20080901, end: 20081001
  2. ZYPREXA [Concomitant]
     Dosage: 5 MG, ONE AT BEDTIME
     Route: 048
  3. XANAX [Concomitant]
     Dosage: .5 MG, BID AND 2 AT BEDTIME
     Route: 048
  4. LEVOXYL [Concomitant]
     Indication: THYROID HORMONE REPLACEMENT THERAPY
     Dosage: .125 MG, QD
     Route: 048
  5. RESTORIL                           /00393701/ [Concomitant]
     Dosage: 30 MG, QD AT BEDTIME
     Route: 048
  6. OXYCODONE HCL [Concomitant]
     Indication: PAIN
     Dosage: 5 MG, 1-2 TABLETS Q6 HR PRN
     Route: 048
     Dates: start: 20080829, end: 20080901

REACTIONS (2)
  - DRUG EFFECT DECREASED [None]
  - INCORRECT DOSE ADMINISTERED [None]
